FAERS Safety Report 7380238-4 (Version None)
Quarter: 2011Q1

REPORT INFORMATION
  Report Type: 
  Country: None (occurrence: None)
  Receive Date: 20110318
  Receipt Date: 20110307
  Transmission Date: 20110831
  Serious: Yes (Other)
  Sender: FDA-Public Use
  Company Number: 1000019259

PATIENT
  Sex: Female

DRUGS (2)
  1. LEXAPRO [Suspect]
     Indication: DEPRESSION
  2. AMANTADINE (AMANTADINE) (AMANTADINE) [Concomitant]

REACTIONS (2)
  - SEPSIS [None]
  - TREMOR [None]
